FAERS Safety Report 25331027 (Version 1)
Quarter: 2025Q2

REPORT INFORMATION
  Report Type: Report from Study
  Country: CA (occurrence: CA)
  Receive Date: 20250519
  Receipt Date: 20250519
  Transmission Date: 20250716
  Serious: Yes (Hospitalization)
  Sender: TAKEDA
  Company Number: CA-TAKEDA-2025TUS019906

PATIENT
  Age: 19 Year
  Sex: Male

DRUGS (4)
  1. VEDOLIZUMAB [Suspect]
     Active Substance: VEDOLIZUMAB
     Indication: Colitis ulcerative
  2. VEDOLIZUMAB [Suspect]
     Active Substance: VEDOLIZUMAB
  3. IRON [Concomitant]
     Active Substance: IRON
     Indication: Supplementation therapy
  4. MESALAMINE [Concomitant]
     Active Substance: MESALAMINE

REACTIONS (3)
  - Abdominal pain [Recovered/Resolved]
  - Joint dislocation [Recovered/Resolved]
  - Therapeutic reaction time decreased [Unknown]

NARRATIVE: CASE EVENT DATE: 20250201
